FAERS Safety Report 4930313-6 (Version None)
Quarter: 2006Q1

REPORT INFORMATION
  Report Type: 
  Country: None (occurrence: None)
  Receive Date: 20060224
  Receipt Date: 20060216
  Transmission Date: 20060701
  Serious: Yes (Other)
  Sender: FDA-Public Use
  Company Number: HQWYE139407FEB05

PATIENT
  Age: 62 Year
  Sex: Male
  Weight: 72.6 kg

DRUGS (17)
  1. TACROLIMUS, CONTROL FOR SIROLIMUS (TACROLIMUS, CAPSULE) [Suspect]
     Indication: PROPHYLAXIS AGAINST TRANSPLANT REJECTION
     Dosage: 9 MG 1X PER 1 DAY ORAL; 4MG 1X PER 1 DAY ORAL
     Route: 048
     Dates: start: 20020524, end: 20021219
  2. TACROLIMUS, CONTROL FOR SIROLIMUS (TACROLIMUS, CAPSULE) [Suspect]
     Indication: PROPHYLAXIS AGAINST TRANSPLANT REJECTION
     Dosage: 9 MG 1X PER 1 DAY ORAL; 4MG 1X PER 1 DAY ORAL
     Route: 048
     Dates: start: 20021220
  3. SULFAMETHOXAZOLE W/TRIEMTHOPRIM (SULFAMETHOXAZOLE W/TRIMETHOPRIM) [Concomitant]
  4. RANITIDINE [Concomitant]
  5. MULTIVITAMINS, PLAIN (MULTIVITAMINS, PLAIN) [Concomitant]
  6. CALCIUM CARBONATE (CALCIUM CARBONATE) [Concomitant]
  7. ESTER-C (CALCIUM ASCORBATE) [Concomitant]
  8. VITAMIN E [Concomitant]
  9. MAGNESIUM OXIDE (MAGNESIUM OXIDE) [Concomitant]
  10. EFFEXOR [Concomitant]
  11. FLUTICASONE PROPIONATE [Concomitant]
  12. FISH OIL, HYDROGENATED (FISH OIL, HYDROGENATED) [Concomitant]
  13. COZAAR [Concomitant]
  14. AMLODIPINE [Concomitant]
  15. LIPITOR [Concomitant]
  16. CELLCEPT [Concomitant]
  17. PREDNISONE TAB [Concomitant]

REACTIONS (1)
  - PROSTATE CANCER [None]
